FAERS Safety Report 17775367 (Version 2)
Quarter: 2024Q2

REPORT INFORMATION
  Report Type: Report from Study
  Country: US (occurrence: US)
  Receive Date: 20200513
  Receipt Date: 20240614
  Transmission Date: 20240716
  Serious: No
  Sender: FDA-Public Use
  Company Number: US-ACADIA PHARMACEUTICALS INC.-ACA-2020-PIM-000753

PATIENT
  Age: 68 Year
  Sex: Female

DRUGS (6)
  1. NUPLAZID [Suspect]
     Active Substance: PIMAVANSERIN TARTRATE
     Indication: Parkinson^s disease
     Dosage: 17 MILLIGRAM
     Route: 048
     Dates: end: 202002
  2. NUPLAZID [Suspect]
     Active Substance: PIMAVANSERIN TARTRATE
     Indication: Psychotic disorder
     Dosage: 34 MILLIGRAM, NIGHTLY AT BEDTIME
     Route: 048
     Dates: start: 20240424
  3. NUPLAZID [Suspect]
     Active Substance: PIMAVANSERIN TARTRATE
     Indication: Parkinson^s disease
  4. RESTASIS [Concomitant]
     Active Substance: CYCLOSPORINE
     Dosage: 0.05%
  5. RISPERIDONE [Concomitant]
     Active Substance: RISPERIDONE
     Dosage: 3 MILLIGRAM
  6. SINEMET [Concomitant]
     Active Substance: CARBIDOPA\LEVODOPA
     Dosage: 25-100MG

REACTIONS (2)
  - Rash [Unknown]
  - Drug ineffective [Recovered/Resolved]

NARRATIVE: CASE EVENT DATE: 20200201
